FAERS Safety Report 19810020 (Version 1)
Quarter: 2021Q3

REPORT INFORMATION
  Report Type: Report from Study
  Country: None (occurrence: DE)
  Receive Date: 20210909
  Receipt Date: 20210909
  Transmission Date: 20211014
  Serious: Yes (Other)
  Sender: FDA-Public Use
  Company Number: DE-ABBVIE-21K-062-4069250-00

PATIENT
  Age: 33 Year
  Sex: Female

DRUGS (2)
  1. PENTASA XTEND [Concomitant]
     Active Substance: MESALAMINE
     Indication: CROHN^S DISEASE
     Route: 048
     Dates: start: 2019
  2. HUMIRA [Suspect]
     Active Substance: ADALIMUMAB
     Indication: CROHN^S DISEASE
     Route: 058
     Dates: start: 20200902, end: 202102

REACTIONS (6)
  - Influenza like illness [Recovered/Resolved]
  - Circulatory collapse [Recovered/Resolved]
  - Drug level decreased [Recovered/Resolved]
  - Rosacea [Recovering/Resolving]
  - Antibody test positive [Not Recovered/Not Resolved]
  - Dry skin [Recovering/Resolving]

NARRATIVE: CASE EVENT DATE: 202009
